FAERS Safety Report 8816253 (Version 1)
Quarter: 2012Q4

REPORT INFORMATION
  Report Type: Spontaneous
  Country: US (occurrence: None)
  Receive Date: 20120927
  Receipt Date: 20120927
  Transmission Date: 20130627
  Serious: Yes (Other)
  Sender: FDA-Public Use
  Company Number: None

PATIENT
  Age: 46 Year
  Sex: Female
  Weight: 54.43 kg

DRUGS (2)
  1. CAPSAICIN [Suspect]
     Indication: MUSCLE PAIN
     Dosage: 2 years ago top
     Route: 061
  2. TIGER BALM [Suspect]
     Indication: MUSCLE PAIN
     Dosage: top
     Route: 061
     Dates: start: 20120501, end: 20120501

REACTIONS (3)
  - Application site pruritus [None]
  - Blister [None]
  - Application site pain [None]
